FAERS Safety Report 6013915-8 (Version None)
Quarter: 2008Q4

REPORT INFORMATION
  Report Type: 
  Country: None (occurrence: None)
  Receive Date: 20081219
  Receipt Date: 20081210
  Transmission Date: 20090506
  Serious: Yes (Other)
  Sender: FDA-Public Use
  Company Number: US-JNJFOC-20081203180

PATIENT
  Age: 55 Year
  Sex: Female

DRUGS (3)
  1. REMICADE [Suspect]
     Indication: RHEUMATOID ARTHRITIS
     Dosage: 39 TH INFUSION
     Route: 042
  2. TYLENOL (CAPLET) [Concomitant]
     Indication: PREMEDICATION
  3. ALLEGRA [Concomitant]
     Indication: PREMEDICATION

REACTIONS (4)
  - ALTERED STATE OF CONSCIOUSNESS [None]
  - INFUSION RELATED REACTION [None]
  - MUSCULAR WEAKNESS [None]
  - TONGUE OEDEMA [None]
